FAERS Safety Report 4284008-5 (Version None)
Quarter: 2004Q1

REPORT INFORMATION
  Report Type: 
  Country: None (occurrence: None)
  Receive Date: 20040130
  Receipt Date: 20040113
  Transmission Date: 20041129
  Serious: Yes (Death, Hospitalization)
  Sender: FDA-Public Use
  Company Number: US_040199933

PATIENT
  Age: 74 Year
  Sex: Male

DRUGS (2)
  1. HUMULIN-HUMAN NPH INSULIN (RDNA) (HUMAN INSULIN (RD [Suspect]
     Indication: DIABETES MELLITUS
     Dates: start: 19970101
  2. HUMULIN R [Suspect]
     Indication: DIABETES MELLITUS
     Dates: start: 19970101

REACTIONS (5)
  - BLOOD GLUCOSE INCREASED [None]
  - CARDIAC DISORDER [None]
  - CONDITION AGGRAVATED [None]
  - EMPHYSEMA [None]
  - PULMONARY FIBROSIS [None]
